FAERS Safety Report 4573860-1 (Version None)
Quarter: 2005Q1

REPORT INFORMATION
  Report Type: 
  Country: None (occurrence: None)
  Receive Date: 20050203
  Receipt Date: 20050125
  Transmission Date: 20050727
  Serious: Yes (Hospitalization)
  Sender: FDA-Public Use
  Company Number: FABR-10972

PATIENT
  Age: 52 Year
  Sex: Male
  Weight: 55.3388 kg

DRUGS (7)
  1. FABRAZYME [Suspect]
     Indication: FABRY'S DISEASE
     Dosage: 40 MG Q2WKS IV
     Route: 042
     Dates: start: 20040622
  2. REGLAN [Concomitant]
  3. CELLCEPT [Concomitant]
  4. PROGRAF [Concomitant]
  5. SEPTRA [Concomitant]
  6. DILANTIN [Concomitant]
  7. PREDNISONE [Concomitant]

REACTIONS (2)
  - HERPES ZOSTER [None]
  - MEDICATION ERROR [None]
